FAERS Safety Report 10609027 (Version 3)
Quarter: 2014Q4

REPORT INFORMATION
  Report Type: Report from Study
  Country: US (occurrence: US)
  Receive Date: 20141126
  Receipt Date: 20141209
  Transmission Date: 20150529
  Serious: Yes (Other)
  Sender: FDA-Public Use
  Company Number: GXBR2014US002450

PATIENT
  Age: 7 Year
  Sex: Female
  Weight: 21 kg

DRUGS (4)
  1. SYNTHROID [Concomitant]
     Active Substance: LEVOTHYROXINE SODIUM
     Indication: HYPOTHYROIDISM
     Dosage: UNK DF, QD
     Route: 048
  2. EMLA [Suspect]
     Active Substance: LIDOCAINE\PRILOCAINE
     Indication: PRODUCT USED FOR UNKNOWN INDICATION
     Dosage: UNK DF, UNK
     Route: 061
  3. OMNITROPE [Suspect]
     Active Substance: SOMATROPIN
     Indication: DWARFISM
     Dosage: 1 MG, DAILY 6 DAYS A WEEK
     Route: 065
     Dates: start: 201411
  4. OMNITROPE [Suspect]
     Active Substance: SOMATROPIN
     Indication: GROWTH HORMONE DEFICIENCY
     Dosage: 1 MG, INJECTION DAILY 6 DAYS A WEEK
     Route: 065
     Dates: start: 201411, end: 201411

REACTIONS (10)
  - Injection site bruising [Unknown]
  - Homicidal ideation [Recovered/Resolved]
  - Injection site pain [Not Recovered/Not Resolved]
  - Hallucination [Recovered/Resolved]
  - Abnormal behaviour [Recovered/Resolved]
  - Panic attack [Unknown]
  - Aggression [Recovered/Resolved]
  - Hypersensitivity [Unknown]
  - Incorrect dose administered [Unknown]
  - Injection site haemorrhage [Unknown]

NARRATIVE: CASE EVENT DATE: 201411
